FAERS Safety Report 9772734 (Version 3)
Quarter: 2014Q2

REPORT INFORMATION
  Report Type: Spontaneous
  Country: IT (occurrence: IT)
  Receive Date: 20131219
  Receipt Date: 20140515
  Transmission Date: 20141212
  Serious: Yes (Other)
  Sender: FDA-Public Use
  Company Number: IT-TEVA-449997ISR

PATIENT
  Age: 87 Year
  Sex: Female

DRUGS (8)
  1. AMOXICILLINA RATIOPHARM 1 G [Suspect]
     Indication: DENTAL CARE
     Dosage: 1 GRAM DAILY;
     Route: 048
     Dates: start: 20131020, end: 20131026
  2. SINTROM 4 MG [Interacting]
     Dosage: 11 MILLIGRAM DAILY;
     Route: 048
     Dates: start: 20101022
  3. OPTALIDON [Interacting]
     Indication: PAIN
     Dosage: 1 DOSAGE FORMS DAILY;
     Route: 048
     Dates: start: 20131020, end: 20131024
  4. CARVEDILOLO [Concomitant]
     Dosage: 25 MILLIGRAM DAILY;
     Route: 048
  5. TRIAZOLAM [Concomitant]
  6. LASIX 25 MG [Concomitant]
     Dosage: 50 MILLIGRAM DAILY;
     Route: 048
  7. LANOXIN 0.0625 MG [Concomitant]
     Dosage: 1 DOSAGE FORMS DAILY;
     Route: 048
  8. ACIDO PIPEMIDICO DR.REDDY^S 400 MG [Concomitant]

REACTIONS (3)
  - Rectal haemorrhage [Recovered/Resolved]
  - International normalised ratio increased [Recovered/Resolved]
  - Drug interaction [Recovered/Resolved]
